FAERS Safety Report 17709138 (Version 5)
Quarter: 2021Q1

REPORT INFORMATION
  Report Type: Report from Study
  Country: DE (occurrence: DE)
  Receive Date: 20200426
  Receipt Date: 20210306
  Transmission Date: 20210419
  Serious: Yes (Hospitalization, Other)
  Sender: FDA-Public Use
  Company Number: NVSC2020DE110537

PATIENT
  Age: 48 Year
  Sex: Male
  Weight: 94 kg

DRUGS (3)
  1. PANTOPRAZOL [Concomitant]
     Active Substance: PANTOPRAZOLE SODIUM
     Indication: PRODUCT USED FOR UNKNOWN INDICATION
     Dosage: 40 MG, QD (1?0?0?0)
     Route: 048
  2. COSENTYX [Suspect]
     Active Substance: SECUKINUMAB
     Indication: PSORIASIS
     Dosage: 300 MG
     Route: 058
     Dates: start: 20181018, end: 20190509
  3. CLINDAMICIN [Concomitant]
     Active Substance: CLINDAMYCIN
     Indication: PRODUCT USED FOR UNKNOWN INDICATION
     Dosage: 600 MG, TID ( FOR 6 DAYS)
     Route: 042

REACTIONS (22)
  - Lymphangitis [Recovering/Resolving]
  - Erysipelas [Recovered/Resolved]
  - Tonsillar hypertrophy [Unknown]
  - C-reactive protein increased [Unknown]
  - Oropharyngeal pain [Unknown]
  - Haemoglobin decreased [Unknown]
  - Pneumothorax spontaneous [Recovered/Resolved]
  - Monocyte count increased [Unknown]
  - Pharyngitis [Recovered/Resolved]
  - Skin ulcer [Unknown]
  - Weight decreased [Unknown]
  - Glomerular filtration rate decreased [Unknown]
  - Tenderness [Recovered/Resolved]
  - Night sweats [Unknown]
  - Swelling [Recovered/Resolved]
  - Hyperthermia [Recovered/Resolved]
  - Lymphocyte count decreased [Unknown]
  - Erysipelas [Recovered/Resolved]
  - Pyrexia [Recovered/Resolved]
  - Erysipelas [Recovered/Resolved]
  - Gastrooesophageal reflux disease [Unknown]
  - Mean cell haemoglobin concentration decreased [Unknown]

NARRATIVE: CASE EVENT DATE: 20190410
